FAERS Safety Report 16626217 (Version 2)
Quarter: 2019Q4

REPORT INFORMATION
  Report Type: Spontaneous
  Country: CA (occurrence: CA)
  Receive Date: 20190724
  Receipt Date: 20191216
  Transmission Date: 20200122
  Serious: Yes (Other)
  Sender: FDA-Public Use
  Company Number: CA-OTSUKA-2019_026823

PATIENT
  Age: 59 Year
  Sex: Female
  Weight: 77.11 kg

DRUGS (21)
  1. ARIPIPRAZOLE. [Suspect]
     Active Substance: ARIPIPRAZOLE
     Indication: PRODUCT USED FOR UNKNOWN INDICATION
     Dosage: UNK
     Route: 065
  2. DEPAKOTE [Interacting]
     Active Substance: DIVALPROEX SODIUM
     Indication: PRODUCT USED FOR UNKNOWN INDICATION
     Dosage: 1 DF, BID
     Route: 065
     Dates: start: 20190228
  3. FLUVIRAL [Interacting]
     Active Substance: INFLUENZA VIRUS VACCINE
     Indication: PRODUCT USED FOR UNKNOWN INDICATION
     Dosage: UNK
     Route: 065
     Dates: start: 20181005
  4. ALMAGEL ALMAGEL [ALUMINUM HYDROXIDE/MAGNESIUM HYDROXIDE] [Interacting]
     Active Substance: ALUMINUM HYDROXIDE\MAGNESIUM HYDROXIDE
     Dosage: 1 DF, QD
     Route: 065
  5. CLOTRIMAZOLE. [Interacting]
     Active Substance: CLOTRIMAZOLE
     Indication: RASH
     Dosage: UNK, BID (APPLY TO AFFECTED AREA TWICE A DAY)
     Route: 065
     Dates: start: 20181124
  6. JAMP ACETAMINOPHEN [Interacting]
     Active Substance: ACETAMINOPHEN
     Indication: PYREXIA
     Dosage: 2 DF, UNK (EVERY 4 HOURS AS NEEDED)
     Route: 065
     Dates: start: 20190226
  7. CLOZAPINE. [Interacting]
     Active Substance: CLOZAPINE
     Indication: PRODUCT USED FOR UNKNOWN INDICATION
     Dosage: 1 DF, QD
     Route: 065
     Dates: start: 20190228
  8. APO RANITIDINE [Interacting]
     Active Substance: RANITIDINE
     Indication: PRODUCT USED FOR UNKNOWN INDICATION
     Dosage: 1 DF, BID
     Route: 065
     Dates: start: 20190228
  9. AMLODIPINE BESILATE [Interacting]
     Active Substance: AMLODIPINE BESYLATE
     Indication: PRODUCT USED FOR UNKNOWN INDICATION
     Dosage: 1 DF, QD
     Route: 065
     Dates: start: 20190228
  10. LEVOTHYROXINE SODIUM. [Interacting]
     Active Substance: LEVOTHYROXINE SODIUM
     Indication: PRODUCT USED FOR UNKNOWN INDICATION
     Dosage: 1 DF, QD
     Route: 065
     Dates: start: 20190228
  11. OLANZAPINE. [Interacting]
     Active Substance: OLANZAPINE
     Indication: MOOD ALTERED
     Dosage: 1 DF, BID
     Route: 065
  12. PREMARIN [Interacting]
     Active Substance: ESTROGENS, CONJUGATED
     Indication: PRODUCT USED FOR UNKNOWN INDICATION
     Dosage: 0.5 G, UNK (0.5 G TOPICALLY TO VAGINAL OPENING AND URETHRAL MEATUS TWICE WEEKLY)
     Route: 061
     Dates: start: 20190228
  13. VITAMIN D3 [Interacting]
     Active Substance: CHOLECALCIFEROL
     Indication: PRODUCT USED FOR UNKNOWN INDICATION
     Dosage: 1 DF, UNK (ONCE A WEEK)
     Route: 065
     Dates: start: 20190228
  14. OLANZAPINE. [Interacting]
     Active Substance: OLANZAPINE
     Dosage: UNK
     Route: 065
  15. CLOZAPINE. [Interacting]
     Active Substance: CLOZAPINE
     Dosage: 3 DF, QD (20 MG)
     Route: 065
  16. ALMAGEL [ALUMINUM HYDROXIDE/MAGNESIUM HYDROXIDE] [Interacting]
     Active Substance: ALUMINUM HYDROXIDE\MAGNESIUM HYDROXIDE
     Indication: ABDOMINAL DISCOMFORT
     Dosage: 30 ML, UNK (EVERY 4 HOURS AS NEEDED)
     Route: 048
     Dates: start: 20180831
  17. BREXPIPRAZOLE [Interacting]
     Active Substance: BREXPIPRAZOLE
     Indication: PRODUCT USED FOR UNKNOWN INDICATION
     Dosage: UNK
     Route: 065
  18. OLANZAPINE. [Interacting]
     Active Substance: OLANZAPINE
     Dosage: 1 DF, BID
     Route: 065
  19. ESTRADIOL. [Interacting]
     Active Substance: ESTRADIOL
     Indication: PRODUCT USED FOR UNKNOWN INDICATION
     Dosage: 1 DF, UNK (1 DF WITH APPLICATOR INTO THE VAGINA TWICE PER WEEK)
     Route: 067
     Dates: start: 20190228
  20. JAMP ACETAMINOPHEN [Interacting]
     Active Substance: ACETAMINOPHEN
     Indication: PAIN
  21. MINT ZOPICLONE [Interacting]
     Active Substance: ZOPICLONE
     Indication: INSOMNIA
     Dosage: 1 DF, QD (AT BEDTIME AS NEEDED)
     Route: 065
     Dates: start: 20181029

REACTIONS (5)
  - Drug level increased [Unknown]
  - Electrocardiogram QT prolonged [Unknown]
  - Sinus rhythm [Unknown]
  - Drug interaction [Unknown]
  - Schizoaffective disorder [Unknown]
